FAERS Safety Report 8509275-0 (Version None)
Quarter: 2012Q3

REPORT INFORMATION
  Report Type: 
  Country: None (occurrence: None)
  Receive Date: 20120713
  Receipt Date: 20120711
  Transmission Date: 20120928
  Serious: No
  Sender: FDA-Public Use
  Company Number: US-BAYER-2012-069422

PATIENT
  Age: 23 Year
  Sex: Male

DRUGS (1)
  1. GADAVIST [Suspect]
     Indication: NUCLEAR MAGNETIC RESONANCE IMAGING BRAIN
     Dosage: 8 ML, ONCE
     Dates: start: 20120709, end: 20120709

REACTIONS (4)
  - SWELLING FACE [None]
  - URTICARIA [None]
  - PRURITUS [None]
  - ERYTHEMA [None]
